FAERS Safety Report 17256874 (Version 1)
Quarter: 2020Q1

REPORT INFORMATION
  Report Type: Spontaneous
  Country: TR (occurrence: TR)
  Receive Date: 20200110
  Receipt Date: 20200110
  Transmission Date: 20200409
  Serious: Yes (Other)
  Sender: FDA-Public Use
  Company Number: TR-FTV20191231-01

PATIENT
  Age: 36 Year
  Sex: Male

DRUGS (2)
  1. FACTIVE [Suspect]
     Active Substance: GEMIFLOXACIN MESYLATE
     Indication: BRONCHITIS
     Route: 048
     Dates: start: 20191229, end: 20191231
  2. BRUFEN [Concomitant]
     Active Substance: IBUPROFEN

REACTIONS (1)
  - Blood pressure increased [Recovered/Resolved]

NARRATIVE: CASE EVENT DATE: 20191231
